FAERS Safety Report 7137667-3 (Version None)
Quarter: 2010Q4

REPORT INFORMATION
  Report Type: 
  Country: None (occurrence: None)
  Receive Date: 20101206
  Receipt Date: 20101125
  Transmission Date: 20110411
  Serious: Yes (Other)
  Sender: FDA-Public Use
  Company Number: CA-JNJFOC-20101200330

PATIENT
  Sex: Male
  Weight: 74.5 kg

DRUGS (6)
  1. REMICADE [Suspect]
     Indication: RHEUMATOID ARTHRITIS
     Dosage: INFUSION #10 (DATE OF REPORT)
  2. REMICADE [Suspect]
  3. METHOTREXATE [Concomitant]
     Route: 048
  4. PREDNISONE [Concomitant]
     Route: 048
  5. DIDROCAL [Concomitant]
  6. ACETAMINOPHEN W/ CODEINE TAB [Concomitant]
     Dosage: PRN

REACTIONS (3)
  - ACNE [None]
  - HEADACHE [None]
  - PRECANCEROUS SKIN LESION [None]
